FAERS Safety Report 5643954-8 (Version None)
Quarter: 2008Q1

REPORT INFORMATION
  Report Type: 
  Country: None (occurrence: None)
  Receive Date: 20080226
  Receipt Date: 20080211
  Transmission Date: 20080703
  Serious: Yes (Hospitalization, Other)
  Sender: FDA-Public Use
  Company Number: SPI200800067

PATIENT
  Age: 85 Year
  Sex: Female
  Weight: 56.7 kg

DRUGS (10)
  1. AMITIZA [Suspect]
     Indication: CONSTIPATION
     Dosage: 24 MCG, BID, ORAL
     Route: 048
     Dates: start: 20071030, end: 20071208
  2. AMITIZA [Suspect]
     Indication: CONSTIPATION
     Dosage: 24 MCG, BID, ORAL
     Route: 048
     Dates: start: 20080101
  3. POTASSIUM (POTASSIUM) [Concomitant]
  4. ACTONEL [Concomitant]
  5. CALCIUM (CALCIUM) [Concomitant]
  6. ASPIRIN [Concomitant]
  7. CELEXA [Concomitant]
  8. ZANTAC 150 [Concomitant]
  9. FLORINEE (FLUDROCORTISONE ACETATE) [Concomitant]
  10. SORBITOL (SORBITOL) [Concomitant]

REACTIONS (19)
  - BLOOD PRESSURE DECREASED [None]
  - BLOOD PRESSURE INCREASED [None]
  - DISTURBANCE IN ATTENTION [None]
  - FACIAL BONES FRACTURE [None]
  - FALL [None]
  - FOREARM FRACTURE [None]
  - HAEMORRHAGE [None]
  - HYPOTENSION [None]
  - JAW FRACTURE [None]
  - LOSS OF CONSCIOUSNESS [None]
  - MENTAL STATUS CHANGES [None]
  - MULTIPLE INJURIES [None]
  - NAUSEA [None]
  - PRESYNCOPE [None]
  - SINUS DISORDER [None]
  - SUBARACHNOID HAEMORRHAGE [None]
  - SYNCOPE [None]
  - VENTRICULAR ARRHYTHMIA [None]
  - VOMITING [None]
